FAERS Safety Report 9239312 (Version 1)
Quarter: 2013Q2

REPORT INFORMATION
  Report Type: Spontaneous
  Country: US (occurrence: US)
  Receive Date: 20130418
  Receipt Date: 20130418
  Transmission Date: 20140414
  Serious: Yes (Hospitalization, Other)
  Sender: FDA-Public Use
  Company Number: US-TEVA-397886USA

PATIENT
  Age: 30 Year
  Sex: Female

DRUGS (1)
  1. PARAGARD 380A [Suspect]
     Indication: CONTRACEPTION
     Route: 015
     Dates: start: 2011

REACTIONS (13)
  - Ectopic pregnancy [Unknown]
  - Haemorrhage [Unknown]
  - Vaginal haemorrhage [Unknown]
  - Mental impairment [Unknown]
  - Drug ineffective [Unknown]
  - Pain [Unknown]
  - Metrorrhagia [Recovered/Resolved]
  - Abdominal pain [Unknown]
  - Hyperhidrosis [Unknown]
  - Depressed mood [Unknown]
  - Emotional distress [Unknown]
  - Insomnia [Unknown]
  - Nightmare [Unknown]
